FAERS Safety Report 19875051 (Version 1)
Quarter: 2021Q3

REPORT INFORMATION
  Report Type: Spontaneous
  Country: FR (occurrence: FR)
  Receive Date: 20210923
  Receipt Date: 20210923
  Transmission Date: 20211014
  Serious: Yes (Other)
  Sender: FDA-Public Use
  Company Number: FR-MYLANLABS-2021M1063997

PATIENT
  Age: 68 Year
  Sex: Male

DRUGS (4)
  1. TRETINOIN. [Suspect]
     Active Substance: TRETINOIN
     Dosage: FIVE CYCLES
  2. AZACITIDINE. [Suspect]
     Active Substance: AZACITIDINE
     Dosage: 75 MILLIGRAM/SQ. METER, QD (FOR 7 CONSECUTIVE DAYS WITH CYCLES OF 28 DAYS)
  3. AZACITIDINE. [Suspect]
     Active Substance: AZACITIDINE
     Indication: ACUTE MYELOID LEUKAEMIA
     Dosage: FIVE CYCLES
  4. TRETINOIN. [Suspect]
     Active Substance: TRETINOIN
     Indication: ACUTE MYELOID LEUKAEMIA
     Dosage: 45 MG/SQ. METER,QD(DAILY FOR 2 CONSECUTIVE WEEKS EACH MONTH.2 CYCLES RECEIVED)

REACTIONS (2)
  - Acute myeloid leukaemia recurrent [Unknown]
  - Drug ineffective [Unknown]
